FAERS Safety Report 7507156-2 (Version None)
Quarter: 2011Q2

REPORT INFORMATION
  Report Type: 
  Country: None (occurrence: None)
  Receive Date: 20110526
  Receipt Date: 20110426
  Transmission Date: 20111010
  Serious: No
  Sender: FDA-Public Use
  Company Number: US-BAYER-2011-037627

PATIENT
  Age: 83 Year
  Sex: Female
  Weight: 54 kg

DRUGS (1)
  1. NAPROXEN SODIUM [Suspect]
     Dosage: BROKE AN TABLET IN HALF
     Route: 048
     Dates: start: 20090101

REACTIONS (1)
  - ORAL DISCOMFORT [None]
